FAERS Safety Report 15534508 (Version 3)
Quarter: 2018Q4

REPORT INFORMATION
  Report Type: Spontaneous
  Country: NL (occurrence: NL)
  Receive Date: 20181022
  Receipt Date: 20181106
  Transmission Date: 20190205
  Serious: Yes (Death, Life-Threatening, Other)
  Sender: FDA-Public Use
  Company Number: NL-AUROBINDO-AUR-APL-2018-051429

PATIENT
  Age: 57 Year
  Sex: Male

DRUGS (7)
  1. PREDNISOLONE. [Suspect]
     Active Substance: PREDNISOLONE
     Indication: TUBULOINTERSTITIAL NEPHRITIS
     Dosage: 5 MILLIGRAM, DAILY
     Route: 065
  2. PREDNISOLONE. [Suspect]
     Active Substance: PREDNISOLONE
     Indication: ANGIOTENSIN CONVERTING ENZYME INCREASED
  3. INTERFERON GAMMA NOS [Suspect]
     Active Substance: INTERFERON GAMMA
     Indication: MYCOBACTERIAL INFECTION
     Dosage: UNK
     Route: 065
  4. MOXIFLOXACIN FILM-COATED TABLET [Suspect]
     Active Substance: MOXIFLOXACIN
     Indication: MYCOBACTERIAL INFECTION
     Dosage: UNK
     Route: 065
  5. AMIKACIN. [Suspect]
     Active Substance: AMIKACIN
     Indication: MYCOBACTERIAL INFECTION
     Dosage: UNK
     Route: 065
  6. PREDNISOLONE. [Suspect]
     Active Substance: PREDNISOLONE
     Indication: SARCOIDOSIS
  7. CLOFAZIMINE [Suspect]
     Active Substance: CLOFAZIMINE
     Indication: MYCOBACTERIAL INFECTION
     Dosage: UNK
     Route: 065

REACTIONS (10)
  - Mycobacterial infection [Fatal]
  - Pneumonia [Fatal]
  - Multiple organ dysfunction syndrome [Fatal]
  - Coma [Recovered/Resolved]
  - Hyperammonaemia [Recovered/Resolved]
  - Metabolic encephalopathy [Recovered/Resolved]
  - Product use in unapproved indication [Unknown]
  - Intensive care unit acquired weakness [Fatal]
  - Ascites [Recovered/Resolved]
  - Off label use [Unknown]
